FAERS Safety Report 6398466-3 (Version None)
Quarter: 2009Q4

REPORT INFORMATION
  Report Type: 
  Country: None (occurrence: None)
  Receive Date: 20091013
  Receipt Date: 20091008
  Transmission Date: 20100525
  Serious: Yes (Hospitalization)
  Sender: FDA-Public Use
  Company Number: A0810948A

PATIENT
  Age: 62 Year
  Sex: Female

DRUGS (6)
  1. ADVAIR DISKUS 100/50 [Suspect]
     Indication: EMPHYSEMA
     Dosage: 1PUFF TWICE PER DAY
     Route: 055
     Dates: start: 20030101
  2. DIOVAN [Concomitant]
  3. SPIRIVA [Concomitant]
  4. ACIPHEX [Concomitant]
  5. TYLENOL (CAPLET) [Concomitant]
  6. IMODIUM [Concomitant]

REACTIONS (8)
  - CHEST PAIN [None]
  - DRUG INEFFECTIVE [None]
  - DYSPNOEA [None]
  - GAIT DISTURBANCE [None]
  - MACULAR DEGENERATION [None]
  - OXYGEN SATURATION DECREASED [None]
  - VISION BLURRED [None]
  - VITREOUS DETACHMENT [None]
